FAERS Safety Report 18641064 (Version 1)
Quarter: 2020Q4

REPORT INFORMATION
  Report Type: Spontaneous
  Country: CA (occurrence: CA)
  Receive Date: 20201221
  Receipt Date: 20201221
  Transmission Date: 20210114
  Serious: Yes (Other)
  Sender: FDA-Public Use
  Company Number: CA-ROCHE-2734513

PATIENT

DRUGS (1)
  1. LUCENTIS [Suspect]
     Active Substance: RANIBIZUMAB
     Indication: PRODUCT USED FOR UNKNOWN INDICATION
     Dosage: UNK
     Route: 065

REACTIONS (6)
  - Diabetic nephropathy [Unknown]
  - Glomerulonephropathy [Unknown]
  - Mean cell volume decreased [Unknown]
  - Microcytic anaemia [Unknown]
  - Renal impairment [Unknown]
  - Haemoglobin decreased [Unknown]
